FAERS Safety Report 9885868 (Version 3)
Quarter: 2014Q1

REPORT INFORMATION
  Report Type: Spontaneous
  Country: US (occurrence: US)
  Receive Date: 20140210
  Receipt Date: 20140227
  Transmission Date: 20141002
  Serious: Yes (Hospitalization)
  Sender: FDA-Public Use
  Company Number: US-GLAXOSMITHKLINE-A0814283A

PATIENT
  Sex: Male

DRUGS (4)
  1. ADVAIR HFA [Suspect]
     Indication: PRODUCT USED FOR UNKNOWN INDICATION
     Route: 055
     Dates: start: 2007
  2. VENTOLIN HFA [Suspect]
     Indication: DYSPNOEA
     Dates: start: 20091026
  3. ADVAIR HFA [Suspect]
     Indication: DYSPNOEA
     Dates: start: 20130307
  4. UNKNOWN [Concomitant]

REACTIONS (4)
  - Pain [Unknown]
  - Type 2 diabetes mellitus [Unknown]
  - Chronic obstructive pulmonary disease [Unknown]
  - Respiratory failure [Unknown]
